FAERS Safety Report 17893856 (Version 2)
Quarter: 2021Q2

REPORT INFORMATION
  Report Type: Spontaneous
  Country: DE (occurrence: DE)
  Receive Date: 20200615
  Receipt Date: 20210515
  Transmission Date: 20210717
  Serious: Yes (Hospitalization, Other)
  Sender: FDA-Public Use
  Company Number: DE-AUROBINDO-AUR-APL-2020-028708

PATIENT
  Sex: Female
  Weight: 88 kg

DRUGS (15)
  1. DULOXETINE. [Suspect]
     Active Substance: DULOXETINE
     Indication: PRODUCT USED FOR UNKNOWN INDICATION
     Dosage: 10 MILLIGRAM
     Route: 048
     Dates: start: 20190425, end: 20190502
  2. ACNATAC [Concomitant]
     Active Substance: CLINDAMYCIN PHOSPHATE\TRETINOIN
     Indication: SKIN DISORDER
     Dosage: 10 MILLIGRAM, ONCE A DAY
     Route: 048
  3. PRAMIPEXOL [Concomitant]
     Active Substance: PRAMIPEXOLE
     Indication: PARKINSON^S DISEASE
     Dosage: 0.18 MILLIGRAM, ONCE A DAY
     Route: 048
  4. VALSARTAN. [Concomitant]
     Active Substance: VALSARTAN
     Indication: HYPERTENSION
     Dosage: 1?0?1/2
     Route: 048
  5. BETNESOL V [Concomitant]
     Indication: SKIN DISORDER
     Dosage: 0.1 PERCENT, EVERY WEEK
     Route: 048
  6. DOXYDERMA [Concomitant]
     Indication: SKIN DISORDER
     Dosage: 50 MILLIGRAM, ONCE A DAY
     Route: 048
  7. JAKAVI [Suspect]
     Active Substance: RUXOLITINIB
     Indication: POLYCYTHAEMIA VERA
     Dosage: 30 MILLIGRAM, DAILY (15 MG, BID)
     Route: 048
     Dates: start: 20180704, end: 20180724
  8. JAKAVI [Suspect]
     Active Substance: RUXOLITINIB
     Dosage: 30 MILLIGRAM, DAILY (15 MG, BID)
     Route: 048
     Dates: start: 20190523
  9. GLUCOSAMIN [Concomitant]
     Active Substance: GLUCOSAMINE
     Indication: ARTHRALGIA
     Dosage: 1200
     Route: 048
  10. PRAMIPEXOL [Concomitant]
     Active Substance: PRAMIPEXOLE
     Indication: RESTLESS LEGS SYNDROME
  11. ROSICED [Concomitant]
     Indication: SKIN DISORDER
     Dosage: 7.5 MILLIGRAM, ONCE A DAY
     Route: 048
  12. MARCUMAR [Concomitant]
     Active Substance: PHENPROCOUMON
     Indication: ANTICOAGULANT THERAPY
     Dosage: 9 OT, UNK
     Route: 048
  13. MARCUMAR [Concomitant]
     Active Substance: PHENPROCOUMON
     Indication: THROMBOSIS
  14. JAKAVI [Suspect]
     Active Substance: RUXOLITINIB
     Dosage: 40 MILLIGRAM, DAILY (20 MG, BID)
     Route: 048
     Dates: start: 20180725, end: 20190522
  15. DULOXALTA [Concomitant]
     Active Substance: DULOXETINE HYDROCHLORIDE
     Indication: DIABETIC NEUROPATHY
     Dosage: 30 MILLIGRAM, ONCE A DAY
     Route: 048

REACTIONS (3)
  - Dyspnoea exertional [Recovered/Resolved]
  - Weight decreased [Unknown]
  - Weight increased [Not Recovered/Not Resolved]

NARRATIVE: CASE EVENT DATE: 20190423
